FAERS Safety Report 25996976 (Version 1)
Quarter: 2025Q4

REPORT INFORMATION
  Report Type: Spontaneous
  Country: CN (occurrence: CN)
  Receive Date: 20251104
  Receipt Date: 20251104
  Transmission Date: 20260119
  Serious: Yes (Other)
  Sender: ORGANON
  Company Number: CN-ORGANON-O2510CHN002117

PATIENT
  Sex: Male

DRUGS (2)
  1. SIMVASTATIN [Interacting]
     Active Substance: SIMVASTATIN
     Dosage: UNK (BEFORE GOING TO BED)
  2. RED WINE [Suspect]
     Active Substance: RED WINE
     Dosage: UNK ( TWO GLASSES OF RED WINE AT DINNER)

REACTIONS (3)
  - Blood creatine phosphokinase increased [Unknown]
  - Alcohol interaction [Unknown]
  - Myalgia [Unknown]
